FAERS Safety Report 6905180-1 (Version None)
Quarter: 2010Q3

REPORT INFORMATION
  Report Type: 
  Country: None (occurrence: None)
  Receive Date: 20100804
  Receipt Date: 20100611
  Transmission Date: 20110219
  Serious: No
  Sender: FDA-Public Use
  Company Number: US-PFIZER INC-2009205455

PATIENT
  Sex: Female
  Weight: 73 kg

DRUGS (12)
  1. LYRICA [Suspect]
     Indication: NEUROPATHY PERIPHERAL
     Dosage: 75 MG, 3X/DAY
     Route: 048
     Dates: start: 20080101
  2. ESTRACE [Concomitant]
     Indication: HYSTERECTOMY
     Dosage: 0.1 MG, 1X/DAY
  3. NEXIUM [Concomitant]
     Indication: BARRETT'S OESOPHAGUS
     Dosage: UNK
  4. MAXAIR [Concomitant]
     Indication: ASTHMA
     Dosage: UNK
  5. ADVAIR DISKUS 100/50 [Concomitant]
     Indication: ASTHMA
     Dosage: UNK
  6. ZANTAC [Concomitant]
     Indication: GASTROOESOPHAGEAL REFLUX DISEASE
     Dosage: UNK
  7. ZANTAC [Concomitant]
  8. MEPERGAN FORTIS [Concomitant]
     Dosage: 50MG AS WHEN NEEDED
  9. ZYRTEC [Concomitant]
     Indication: HYPERSENSITIVITY
     Dosage: UNK
  10. EFFEXOR [Concomitant]
     Dosage: 75 MG, 1X/DAY
  11. THEOPHYLLINE [Concomitant]
     Dosage: UNK
  12. QVAR 40 [Concomitant]
     Dosage: UNK

REACTIONS (6)
  - DECREASED APPETITE [None]
  - HYPOMETABOLISM [None]
  - MENTAL IMPAIRMENT [None]
  - PSYCHOMOTOR HYPERACTIVITY [None]
  - SOMNOLENCE [None]
  - WEIGHT INCREASED [None]
